FAERS Safety Report 5862425-7 (Version None)
Quarter: 2008Q3

REPORT INFORMATION
  Report Type: 
  Country: None (occurrence: None)
  Receive Date: 20080820
  Receipt Date: 20080818
  Transmission Date: 20090109
  Serious: Yes (Hospitalization)
  Sender: FDA-Public Use
  Company Number: TCI2008A04245

PATIENT
  Age: 72 Year
  Sex: Female

DRUGS (3)
  1. LANSOPRAZOLE [Suspect]
     Indication: PROPHYLAXIS AGAINST GASTROINTESTINAL ULCER
     Dosage: 30 MG (30 MG, 1 IN 1 D) PER ORAL
     Route: 048
     Dates: start: 20080715, end: 20080724
  2. NEORAL [Suspect]
     Dosage: PER ORAL
     Route: 048
     Dates: start: 20080709, end: 20080807
  3. PREDNISOLONE [Concomitant]

REACTIONS (3)
  - ANAEMIA [None]
  - BONE MARROW FAILURE [None]
  - LIVER DISORDER [None]
